FAERS Safety Report 6785018-6 (Version None)
Quarter: 2010Q2

REPORT INFORMATION
  Report Type: 
  Country: None (occurrence: None)
  Receive Date: 20100618
  Receipt Date: 20100610
  Transmission Date: 20101027
  Serious: Yes (Hospitalization)
  Sender: FDA-Public Use
  Company Number: 2010JP003380

PATIENT
  Sex: Female

DRUGS (1)
  1. VESICARE [Suspect]
     Dosage: ORAL
     Route: 048

REACTIONS (1)
  - PYELONEPHRITIS [None]
